FAERS Safety Report 5755447-8 (Version None)
Quarter: 2008Q2

REPORT INFORMATION
  Report Type: 
  Country: None (occurrence: None)
  Receive Date: 20080602
  Receipt Date: 20080529
  Transmission Date: 20081010
  Serious: Yes (Life-Threatening, Hospitalization)
  Sender: FDA-Public Use
  Company Number: FR-ASTRAZENECA-2008CG00831

PATIENT
  Age: 29854 Day
  Sex: Female

DRUGS (13)
  1. NEXIUM [Suspect]
     Route: 048
     Dates: end: 20080419
  2. CITALOPRAM HYDROBROMIDE [Suspect]
     Route: 048
     Dates: end: 20080419
  3. ISOBAR [Suspect]
     Route: 048
     Dates: end: 20080419
  4. AMITRIPTYLINE HCL [Suspect]
     Route: 048
     Dates: start: 20080416, end: 20080419
  5. LORAZEPAM [Concomitant]
     Route: 048
     Dates: end: 20080416
  6. LORAZEPAM [Concomitant]
     Route: 048
     Dates: start: 20080416, end: 20080419
  7. BIPERIDYS [Concomitant]
     Route: 048
     Dates: end: 20040419
  8. PEPSANE [Concomitant]
     Route: 048
     Dates: end: 20080419
  9. GAVISCON [Concomitant]
     Route: 048
     Dates: end: 20080419
  10. VASTAREL [Concomitant]
     Route: 048
     Dates: end: 20080419
  11. TANAKAN [Concomitant]
     Route: 048
     Dates: end: 20080419
  12. CIPROFIBRATE [Concomitant]
     Route: 048
     Dates: end: 20080419
  13. BIOCARDE [Concomitant]
     Indication: PROPHYLAXIS
     Route: 048
     Dates: end: 20080419

REACTIONS (2)
  - ALTERED STATE OF CONSCIOUSNESS [None]
  - HYPONATRAEMIA [None]
